FAERS Safety Report 18497419 (Version 1)
Quarter: 2020Q4

REPORT INFORMATION
  Report Type: Spontaneous
  Country: FR (occurrence: FR)
  Receive Date: 20201112
  Receipt Date: 20201112
  Transmission Date: 20210114
  Serious: Yes (Hospitalization)
  Sender: FDA-Public Use
  Company Number: FR-TEVA-2020-FR-1847468

PATIENT
  Age: 82 Year
  Sex: Female
  Weight: 74 kg

DRUGS (20)
  1. LYRICA [Concomitant]
     Active Substance: PREGABALIN
     Dosage: 2 DOSAGE FORM
     Route: 048
  2. VERSATIS [Concomitant]
     Active Substance: LIDOCAINE
     Dosage: UNSPECIFIED
     Route: 062
  3. DOLIPRANE [Concomitant]
     Active Substance: ACETAMINOPHEN
     Dosage: 6 DOSAGE FORMS
     Route: 048
  4. OXYNORM 20 MG, GELULE [Concomitant]
     Active Substance: OXYCODONE HYDROCHLORIDE
     Dosage: 3 DOSAGE FORMS
     Route: 048
     Dates: end: 20200820
  5. LANZOR 15 MG, MICROGRANULES GASTRORESISTANTS EN GELULE [Concomitant]
     Active Substance: LANSOPRAZOLE
     Dosage: 1 DOSAGE FORMS
     Route: 048
  6. LEVOTHYROX 100 MICROGRAMMES, COMPRIME SECABLE [Concomitant]
     Active Substance: LEVOTHYROXINE
     Dosage: 1 DOSAGE FORM
     Route: 048
  7. DUROGESIC [Concomitant]
     Active Substance: FENTANYL
     Dosage: UNSPECIFIED
     Route: 062
  8. METFORMINE [Suspect]
     Active Substance: METFORMIN HYDROCHLORIDE
     Indication: TYPE 2 DIABETES MELLITUS
     Dosage: 2000 MG
     Route: 048
     Dates: end: 20200820
  9. ELIQUIS [Concomitant]
     Active Substance: APIXABAN
     Dosage: 2 DOSAGE FORM
     Route: 048
  10. LAROXYL 40 MG/ML, SOLUTION BUVABLE [Concomitant]
     Active Substance: AMITRIPTYLINE HYDROCHLORIDE
     Dosage: 20 GTT
     Route: 048
  11. SERESTA 10 MG, COMPRIME [Concomitant]
     Active Substance: OXAZEPAM
     Dosage: 2 DOSAGE FORMS
     Route: 048
  12. ACUPAN [Concomitant]
     Active Substance: NEFOPAM HYDROCHLORIDE
     Dosage: 3 DOSAGE FORMS
     Route: 042
     Dates: end: 20200820
  13. DUPHALAC [Concomitant]
     Active Substance: LACTULOSE
     Dosage: 6 DOSAGE FORMS
     Route: 048
  14. HUMALOG [Concomitant]
     Active Substance: INSULIN LISPRO
     Dosage: 3 DOSAGE FORMS
     Route: 058
     Dates: start: 20200820
  15. BISOCE 1,25 MG, COMPRIME PELLICULE [Concomitant]
     Active Substance: BISOPROLOL FUMARATE
     Dosage: 2 DOSAGE FORMS
     Route: 048
  16. TAHOR [Concomitant]
     Active Substance: ATORVASTATIN CALCIUM
     Dosage: 1 DOSAGE FORMS
     Route: 048
  17. LASILIX 40 MG, COMPRIME SECABLE [Concomitant]
     Active Substance: FUROSEMIDE
     Dosage: 1 DOSAGE FORMS
     Route: 048
  18. NORSET 15 MG, COMPRIME ORODISPERSIBLE [Concomitant]
     Dosage: 2 DOSAGE FORM
     Route: 048
  19. DIFFU K, GELULE [Concomitant]
     Active Substance: POTASSIUM CHLORIDE
     Dosage: 3 DOSAGE FORMS
     Route: 048
  20. AMLOR 5 MG, GELULE [Concomitant]
     Active Substance: AMLODIPINE BESYLATE
     Dosage: 2 DOSAGE FORM
     Route: 048

REACTIONS (2)
  - Hyperkalaemia [Recovered/Resolved]
  - Metabolic acidosis [Recovered/Resolved]

NARRATIVE: CASE EVENT DATE: 20200820
